FAERS Safety Report 5504687-1 (Version None)
Quarter: 2007Q4

REPORT INFORMATION
  Report Type: 
  Country: None (occurrence: None)
  Receive Date: 20071030
  Receipt Date: 20070823
  Transmission Date: 20080405
  Serious: No
  Sender: FDA-Public Use
  Company Number: 267007

PATIENT
  Age: 71 Year
  Sex: Male

DRUGS (2)
  1. LEVEMIR [Suspect]
     Dosage: 50 U, QD, SUBCUTANEOUS
     Route: 058
     Dates: start: 20061201
  2. NOVOLOG [Suspect]
     Indication: TYPE 1 DIABETES MELLITUS
     Dosage: SUBCUTANEOUS
     Route: 058
     Dates: start: 20061201

REACTIONS (1)
  - APHTHOUS STOMATITIS [None]
